FAERS Safety Report 7022577-2 (Version None)
Quarter: 2010Q3

REPORT INFORMATION
  Report Type: 
  Country: None (occurrence: None)
  Receive Date: 20100916
  Receipt Date: 20100712
  Transmission Date: 20110219
  Serious: No
  Sender: FDA-Public Use
  Company Number: DKLU1063509

PATIENT
  Age: 9 Month
  Sex: Male

DRUGS (5)
  1. SABRIL [Suspect]
     Indication: INFANTILE SPASMS
     Dosage: 50 MG/KG MILLIGRAM(S)/KILOGRAM, ORAL ; 25 MG/KG MILLIGRAM(S)/KILOGRAM, ORAL
     Route: 048
     Dates: start: 20100701, end: 20100701
  2. SABRIL [Suspect]
     Indication: INFANTILE SPASMS
     Dosage: 50 MG/KG MILLIGRAM(S)/KILOGRAM, ORAL ; 25 MG/KG MILLIGRAM(S)/KILOGRAM, ORAL
     Route: 048
     Dates: start: 20100701
  3. KETOGENIC DIET (LOW-ENERGY DIETS) [Concomitant]
  4. PHENOBARBITAL TAB [Concomitant]
  5. KEPPRA [Concomitant]

REACTIONS (1)
  - DYSTONIA [None]
